FAERS Safety Report 4847126-6 (Version None)
Quarter: 2005Q4

REPORT INFORMATION
  Report Type: 
  Country: None (occurrence: None)
  Receive Date: 20051206
  Receipt Date: 20051206
  Transmission Date: 20060501
  Serious: No
  Sender: FDA-Public Use
  Company Number: None

PATIENT
  Age: 45 Year
  Sex: Male
  Weight: 99.7913 kg

DRUGS (1)
  1. CLOZARIL [Suspect]
     Dosage: 2 AM /5 PM TAKEN PO ( SEE IMAGE)
     Route: 048

REACTIONS (1)
  - DRUG LEVEL FLUCTUATING [None]
